FAERS Safety Report 9540277 (Version 2)
Quarter: 2013Q4

REPORT INFORMATION
  Report Type: Spontaneous
  Country: FR (occurrence: FR)
  Receive Date: 20130920
  Receipt Date: 20131001
  Transmission Date: 20140711
  Serious: Yes (Hospitalization, Other)
  Sender: FDA-Public Use
  Company Number: FR-TEVA-431748ISR

PATIENT
  Age: 29 Year
  Sex: Female

DRUGS (13)
  1. EFFENTORA [Suspect]
     Dosage: 2400 MICROGRAM DAILY;
     Route: 002
     Dates: end: 20130515
  2. ZOLINZA [Suspect]
     Dosage: 200 MILLIGRAM DAILY; THE PRESCRIPTION WAS GIVEN FOR 3 WEEKS OUT OF 4
     Route: 048
     Dates: start: 20130506, end: 20130513
  3. ZOLINZA [Suspect]
     Route: 048
     Dates: start: 20130517, end: 201307
  4. OXYCONTIN [Suspect]
     Dosage: 80 MILLIGRAM DAILY;
     Route: 048
     Dates: end: 20130512
  5. SEROPLEX [Concomitant]
     Route: 048
  6. GUTRON [Concomitant]
     Route: 048
  7. ASCOFER [Concomitant]
     Route: 048
  8. MESTINON [Concomitant]
     Route: 048
  9. SPIRIVA [Concomitant]
     Route: 055
  10. XANAX [Concomitant]
     Route: 048
  11. EUPANTOL [Concomitant]
     Route: 048
  12. STILNOX [Concomitant]
     Route: 048
  13. COLIMYCINE [Concomitant]
     Route: 048

REACTIONS (4)
  - Small intestinal obstruction [Recovered/Resolved]
  - Vomiting [Recovered/Resolved]
  - Abdominal distension [Recovered/Resolved]
  - Neoplasm progression [Unknown]
